FAERS Safety Report 10031879 (Version 1)
Quarter: 2014Q1

REPORT INFORMATION
  Report Type: Spontaneous
  Country: US (occurrence: US)
  Receive Date: 20140324
  Receipt Date: 20140324
  Transmission Date: 20141002
  Serious: Yes (Other)
  Sender: FDA-Public Use
  Company Number: US-PFIZER INC-2014079796

PATIENT
  Age: 66 Year
  Sex: Male
  Weight: 129.25 kg

DRUGS (1)
  1. REVATIO [Suspect]
     Indication: PULMONARY HYPERTENSION
     Dosage: 20 MG, 3X/DAY
     Route: 048
     Dates: start: 2014

REACTIONS (3)
  - Diabetes mellitus [Unknown]
  - Insomnia [Recovered/Resolved]
  - Pyrexia [Unknown]
